FAERS Safety Report 6080571-2 (Version None)
Quarter: 2009Q1

REPORT INFORMATION
  Report Type: 
  Country: None (occurrence: None)
  Receive Date: 20090217
  Receipt Date: 20090206
  Transmission Date: 20090719
  Serious: Yes (Life-Threatening)
  Sender: FDA-Public Use
  Company Number: B0558003A

PATIENT
  Age: 55 Year
  Sex: Female

DRUGS (6)
  1. TRACRIUM [Suspect]
     Indication: TUMOUR EXCISION
     Route: 042
     Dates: start: 20081212, end: 20081212
  2. BLEU PATENT [Suspect]
     Indication: TUMOUR EXCISION
     Route: 042
     Dates: start: 20081212, end: 20081212
  3. CEFAZOLIN [Suspect]
     Indication: TUMOUR EXCISION
     Dosage: 2G SINGLE DOSE
     Route: 042
     Dates: start: 20081212, end: 20081212
  4. SUFENTA PRESERVATIVE FREE [Concomitant]
     Route: 065
     Dates: start: 20081212, end: 20081212
  5. DIPRIVAN [Concomitant]
     Route: 065
     Dates: start: 20081212, end: 20081212
  6. LEVOTHYROX [Concomitant]
     Indication: HYPOTHYROIDISM
     Route: 065

REACTIONS (3)
  - ANAPHYLACTIC SHOCK [None]
  - GENERALISED ERYTHEMA [None]
  - HYPOTENSION [None]
